FAERS Safety Report 9645736 (Version 4)
Quarter: 2014Q1

REPORT INFORMATION
  Report Type: Spontaneous
  Country: JP (occurrence: JP)
  Receive Date: 20131025
  Receipt Date: 20140131
  Transmission Date: 20141002
  Serious: Yes (Hospitalization, Other)
  Sender: FDA-Public Use
  Company Number: JP-JNJFOC-20131013009

PATIENT
  Age: 70 Year
  Sex: Female
  Weight: 50 kg

DRUGS (15)
  1. DUROTEP [Suspect]
     Indication: PRODUCT USED FOR UNKNOWN INDICATION
     Route: 062
     Dates: start: 20130913
  2. SERENASE [Suspect]
     Indication: PRODUCT USED FOR UNKNOWN INDICATION
     Route: 048
     Dates: start: 20130823, end: 20130912
  3. VELCADE [Suspect]
     Indication: PLASMA CELL MYELOMA
     Route: 058
     Dates: start: 20130926
  4. VELCADE [Suspect]
     Indication: PLASMA CELL MYELOMA
     Route: 058
     Dates: start: 20130723, end: 20130723
  5. VELCADE [Suspect]
     Indication: PLASMA CELL MYELOMA
     Route: 058
     Dates: start: 20130730, end: 20130730
  6. VELCADE [Suspect]
     Indication: PLASMA CELL MYELOMA
     Route: 058
     Dates: start: 20130806, end: 20130806
  7. VELCADE [Suspect]
     Indication: PLASMA CELL MYELOMA
     Route: 058
     Dates: start: 20130910, end: 20130910
  8. VELCADE [Suspect]
     Indication: PLASMA CELL MYELOMA
     Route: 058
     Dates: start: 20130903, end: 20130903
  9. VELCADE [Suspect]
     Indication: PLASMA CELL MYELOMA
     Route: 058
     Dates: start: 20130827, end: 20130827
  10. VELCADE [Suspect]
     Indication: PLASMA CELL MYELOMA
     Route: 058
     Dates: start: 20130813, end: 20130813
  11. DEPAS [Suspect]
     Indication: PRODUCT USED FOR UNKNOWN INDICATION
     Route: 048
     Dates: start: 20130823, end: 20130912
  12. CEFTRIAXONE SODIUM [Suspect]
     Indication: DEPRESSED LEVEL OF CONSCIOUSNESS
     Route: 042
     Dates: start: 20130912, end: 20130917
  13. MELPHALAN [Concomitant]
     Indication: PLASMA CELL MYELOMA
     Route: 065
  14. PREDNISOLONE [Concomitant]
     Indication: PLASMA CELL MYELOMA
     Route: 065
  15. MINOFIT [Concomitant]
     Indication: LIVER DISORDER
     Route: 042
     Dates: start: 20130917, end: 20130930

REACTIONS (4)
  - Depressed level of consciousness [Recovered/Resolved]
  - Liver disorder [Recovered/Resolved]
  - Pyrexia [Recovered/Resolved]
  - Agitation [Recovered/Resolved]
